FAERS Safety Report 6387950-4 (Version None)
Quarter: 2009Q4

REPORT INFORMATION
  Report Type: 
  Country: None (occurrence: None)
  Receive Date: 20091005
  Receipt Date: 20090924
  Transmission Date: 20100525
  Serious: Yes (Other)
  Sender: FDA-Public Use
  Company Number: CA-JNJFOC-20090907431

PATIENT
  Age: 50 Year
  Sex: Male

DRUGS (4)
  1. REMICADE [Suspect]
     Indication: COLITIS ULCERATIVE
     Dosage: HAD RECEIVED ONE DOSE
     Route: 042
  2. CALCIUM [Concomitant]
  3. VITAMIN D [Concomitant]
  4. ACLASTA [Concomitant]

REACTIONS (1)
  - DYSTONIA [None]
